FAERS Safety Report 9735843 (Version 1)
Quarter: 2013Q4

REPORT INFORMATION
  Report Type: Spontaneous
  Country: US (occurrence: US)
  Receive Date: 20131206
  Receipt Date: 20131206
  Transmission Date: 20140711
  Serious: No
  Sender: FDA-Public Use
  Company Number: US-GILEAD-2009-0024157

PATIENT
  Age: 71 Year
  Sex: Female

DRUGS (14)
  1. LETAIRIS [Suspect]
     Indication: PULMONARY ARTERIAL HYPERTENSION
     Route: 048
     Dates: start: 20080408
  2. OMEPRAZOLE [Concomitant]
  3. MELOXICAM [Concomitant]
  4. ADVAIR [Concomitant]
  5. SUCRALAFATE [Concomitant]
  6. SINGULAIR [Concomitant]
  7. CITALOPRAM [Concomitant]
  8. TRAZODONE [Concomitant]
  9. FUROSEMIDE [Concomitant]
  10. CLIDINIUM [Concomitant]
  11. METOPROLOL [Concomitant]
  12. POTASSIUM [Concomitant]
  13. XOPENEX [Concomitant]
  14. PREMARIN [Concomitant]

REACTIONS (1)
  - Anaemia [Unknown]
